FAERS Safety Report 19914053 (Version 4)
Quarter: 2022Q3

REPORT INFORMATION
  Report Type: Spontaneous
  Country: US (occurrence: US)
  Receive Date: 20211004
  Receipt Date: 20220707
  Transmission Date: 20221027
  Serious: No
  Sender: FDA-Public Use
  Company Number: US-PFIZER INC-202101103727

PATIENT
  Age: 58 Year
  Sex: Female

DRUGS (1)
  1. XELJANZ XR [Suspect]
     Active Substance: TOFACITINIB CITRATE
     Dosage: 11 MG

REACTIONS (20)
  - Diarrhoea [Unknown]
  - Fatigue [Unknown]
  - Headache [Unknown]
  - Upper respiratory tract infection [Unknown]
  - COVID-19 [Unknown]
  - Dizziness [Unknown]
  - Blood glucose decreased [Unknown]
  - Initial insomnia [Unknown]
  - Depression [Unknown]
  - Bradykinesia [Unknown]
  - Pain [Unknown]
  - Asthenia [Unknown]
  - General physical health deterioration [Unknown]
  - Insomnia [Unknown]
  - Restlessness [Unknown]
  - Decreased appetite [Unknown]
  - Sinusitis [Recovering/Resolving]
  - Gait disturbance [Unknown]
  - Condition aggravated [Unknown]
  - Alopecia [Unknown]

NARRATIVE: CASE EVENT DATE: 20210901
